FAERS Safety Report 25113074 (Version 1)
Quarter: 2025Q1

REPORT INFORMATION
  Report Type: Report from Study
  Country: US (occurrence: US)
  Receive Date: 20250324
  Receipt Date: 20250324
  Transmission Date: 20250409
  Serious: Yes (Hospitalization)
  Sender: EISAI
  Company Number: US-Eisai-EC-2025-185277

PATIENT
  Age: 43 Year
  Sex: Female

DRUGS (2)
  1. LENVIMA [Suspect]
     Active Substance: LENVATINIB
     Indication: Thyroid cancer
     Dates: end: 202503
  2. LENVIMA [Suspect]
     Active Substance: LENVATINIB
     Dates: start: 202503

REACTIONS (5)
  - Dehydration [Unknown]
  - Abdominal pain [Unknown]
  - Stomatitis [Unknown]
  - Fatigue [Unknown]
  - Hepatic lesion [Unknown]

NARRATIVE: CASE EVENT DATE: 20250101
